FAERS Safety Report 13185800 (Version 3)
Quarter: 2017Q2

REPORT INFORMATION
  Report Type: Spontaneous
  Country: US (occurrence: US)
  Receive Date: 20170203
  Receipt Date: 20170428
  Transmission Date: 20170830
  Serious: Yes (Hospitalization, Other)
  Sender: FDA-Public Use
  Company Number: US-ELI_LILLY_AND_COMPANY-US201702000359

PATIENT
  Age: 64 Year
  Sex: Male
  Weight: 100.68 kg

DRUGS (16)
  1. AXIRON [Suspect]
     Active Substance: TESTOSTERONE
     Indication: ANDROGEN REPLACEMENT THERAPY
     Dosage: 2 DF, QD
     Route: 065
     Dates: start: 20110730, end: 201512
  2. FORTESTA [Suspect]
     Active Substance: TESTOSTERONE
     Indication: ANDROGEN REPLACEMENT THERAPY
     Dosage: 3 DF, QD
     Route: 065
     Dates: start: 20110730, end: 201512
  3. LORAZEPAM. [Concomitant]
     Active Substance: LORAZEPAM
     Indication: ANXIETY
     Dosage: UNK
     Route: 065
     Dates: start: 2006
  4. FLOMAX [Concomitant]
     Active Substance: TAMSULOSIN HYDROCHLORIDE
     Indication: PROSTATIC DISORDER
     Dosage: UNK
     Route: 065
     Dates: start: 2014
  5. CYMBALTA [Concomitant]
     Active Substance: DULOXETINE HYDROCHLORIDE
     Indication: ANXIETY
     Dosage: UNK
     Route: 065
     Dates: start: 2008
  6. OMEPRAZOLE. [Concomitant]
     Active Substance: OMEPRAZOLE
     Indication: DYSPEPSIA
     Dosage: UNK
     Route: 065
     Dates: start: 2007, end: 2012
  7. LIPITOR [Concomitant]
     Active Substance: ATORVASTATIN CALCIUM
     Indication: BLOOD CHOLESTEROL ABNORMAL
     Dosage: UNK
     Route: 065
     Dates: start: 2001, end: 2006
  8. ANDROGEL [Suspect]
     Active Substance: TESTOSTERONE
     Indication: ANDROGEN REPLACEMENT THERAPY
     Dosage: 3 DF, QD
     Route: 065
     Dates: start: 20110730, end: 201512
  9. TRAZODONE [Concomitant]
     Active Substance: TRAZODONE HYDROCHLORIDE
     Indication: ANXIETY
     Dosage: UNK
     Route: 065
     Dates: start: 2010, end: 2015
  10. DEXILANT [Concomitant]
     Active Substance: DEXLANSOPRAZOLE
     Indication: DYSPEPSIA
     Dosage: UNK
     Route: 065
     Dates: start: 2012
  11. ATORVASTATIN [Concomitant]
     Active Substance: ATORVASTATIN
     Indication: BLOOD CHOLESTEROL ABNORMAL
     Dosage: UNK
     Route: 065
     Dates: start: 2006
  12. SILDENAFIL. [Concomitant]
     Active Substance: SILDENAFIL
     Indication: CARDIOVASCULAR INSUFFICIENCY
     Dosage: UNK
     Route: 065
     Dates: start: 2010, end: 2015
  13. VICODIN [Concomitant]
     Active Substance: ACETAMINOPHEN\HYDROCODONE BITARTRATE
     Indication: BACK PAIN
     Dosage: UNK
     Route: 065
     Dates: start: 1997, end: 2015
  14. TESTIM [Suspect]
     Active Substance: TESTOSTERONE
     Indication: ANDROGEN REPLACEMENT THERAPY
     Dosage: 2 DF, QD
     Route: 065
     Dates: start: 20110730, end: 201512
  15. LOSARTAN. [Concomitant]
     Active Substance: LOSARTAN
     Indication: HYPERTENSION
     Dosage: UNK
     Route: 065
     Dates: start: 2006
  16. PROTONIX                           /00661201/ [Concomitant]
     Active Substance: OMEPRAZOLE
     Indication: DYSPEPSIA
     Dosage: UNK
     Route: 065
     Dates: start: 2011

REACTIONS (18)
  - Cerebrovascular disorder [Unknown]
  - Prostate cancer [Not Recovered/Not Resolved]
  - Confusional state [Not Recovered/Not Resolved]
  - Red blood cell count increased [Not Recovered/Not Resolved]
  - Blood pressure increased [Unknown]
  - Atrial fibrillation [Unknown]
  - Heart rate decreased [Unknown]
  - Headache [Unknown]
  - Fatigue [Not Recovered/Not Resolved]
  - Prostatomegaly [Unknown]
  - Amnesia [Not Recovered/Not Resolved]
  - Depression [Not Recovered/Not Resolved]
  - Polycythaemia [Unknown]
  - Anger [Not Recovered/Not Resolved]
  - Lacunar infarction [Unknown]
  - Microvascular coronary artery disease [Unknown]
  - White matter lesion [Unknown]
  - Prostatic specific antigen increased [Not Recovered/Not Resolved]

NARRATIVE: CASE EVENT DATE: 20130927
